FAERS Safety Report 4316287-X (Version None)
Quarter: 2004Q1

REPORT INFORMATION
  Report Type: 
  Country: None (occurrence: None)
  Receive Date: 20040310
  Receipt Date: 20040105
  Transmission Date: 20041129
  Serious: Yes (Other)
  Sender: FDA-Public Use
  Company Number: HQWYE123206JAN04

PATIENT
  Age: 84 Year
  Sex: Female
  Weight: 60.38 kg

DRUGS (2)
  1. PROTONIX [Suspect]
     Dosage: 20 MG (SINGLE DOSE), ORAL
     Route: 048
     Dates: start: 20030101, end: 20030101
  2. CLARINEX [Suspect]
     Dosage: ONE DOSE ONLY, ORAL
     Route: 048
     Dates: start: 20030101, end: 20030101

REACTIONS (5)
  - ASTHENIA [None]
  - DIFFICULTY IN WALKING [None]
  - DIZZINESS [None]
  - FEELING ABNORMAL [None]
  - TREMOR [None]
